FAERS Safety Report 9350535 (Version 1)
Quarter: 2013Q2

REPORT INFORMATION
  Report Type: Spontaneous
  Country: US (occurrence: US)
  Receive Date: 20130617
  Receipt Date: 20130617
  Transmission Date: 20140414
  Serious: No
  Sender: FDA-Public Use
  Company Number: US-PFIZER INC-2013181069

PATIENT
  Age: 58 Year
  Sex: Male
  Weight: 67.57 kg

DRUGS (1)
  1. LYRICA [Suspect]
     Indication: NEOPLASM MALIGNANT
     Dosage: UNK
     Dates: start: 2013, end: 2013

REACTIONS (2)
  - Off label use [Unknown]
  - Hypersensitivity [Unknown]
